FAERS Safety Report 12857341 (Version 1)
Quarter: 2016Q4

REPORT INFORMATION
  Report Type: Spontaneous
  Country: NZ (occurrence: NZ)
  Receive Date: 20161018
  Receipt Date: 20161018
  Transmission Date: 20170207
  Serious: Yes (Other)
  Sender: FDA-Public Use
  Company Number: NZ-LEO PHARMA-244272

PATIENT
  Age: 63 Year
  Sex: Male

DRUGS (2)
  1. GLARGINE INJECTION [Concomitant]
     Indication: PRODUCT USED FOR UNKNOWN INDICATION
  2. DAIVOBET [Suspect]
     Active Substance: BETAMETHASONE DIPROPIONATE\CALCIPOTRIENE
     Indication: PSORIASIS
     Route: 061
     Dates: start: 2014, end: 201508

REACTIONS (3)
  - Diabetes mellitus inadequate control [Recovering/Resolving]
  - Pustular psoriasis [Recovering/Resolving]
  - Psoriasis [Recovering/Resolving]

NARRATIVE: CASE EVENT DATE: 2015
